FAERS Safety Report 10777614 (Version 11)
Quarter: 2015Q4

REPORT INFORMATION
  Report Type: Spontaneous
  Country: US (occurrence: US)
  Receive Date: 20150209
  Receipt Date: 20151119
  Transmission Date: 20160304
  Serious: Yes (Hospitalization)
  Sender: FDA-Public Use
  Company Number: US-PFIZER INC-2015047178

PATIENT
  Age: 88 Year
  Sex: Male
  Weight: 84.81 kg

DRUGS (4)
  1. VITAMIN D [Concomitant]
     Active Substance: CHOLECALCIFEROL
     Indication: BONE DISORDER
     Dosage: UNK
  2. SUTENT [Suspect]
     Active Substance: SUNITINIB MALATE
     Dosage: 12.5 MG, CYCLIC (28 DAYS ON/14 DAYS OFF)
     Dates: start: 20150914, end: 20151027
  3. SUTENT [Suspect]
     Active Substance: SUNITINIB MALATE
     Dosage: 25 MG, DAILY
     Dates: start: 20150914
  4. SUTENT [Suspect]
     Active Substance: SUNITINIB MALATE
     Indication: METASTATIC RENAL CELL CARCINOMA
     Dosage: 25 MG,ONCE DAILY, 28 DAYS ON AND 14 DAYS OFF, CYCLIC
     Dates: start: 20150125, end: 20150312

REACTIONS (21)
  - Stomatitis [Recovered/Resolved]
  - Asthenia [Unknown]
  - Tenderness [Unknown]
  - Glossodynia [Recovered/Resolved]
  - Insomnia [Unknown]
  - Disease progression [Unknown]
  - Infection [Recovered/Resolved]
  - Decreased appetite [Recovered/Resolved]
  - Pain in extremity [Unknown]
  - Muscle spasms [Unknown]
  - Fatigue [Unknown]
  - Weight decreased [Unknown]
  - Impaired healing [Recovering/Resolving]
  - Metastatic renal cell carcinoma [Unknown]
  - Dental caries [Recovered/Resolved]
  - Somnolence [Recovered/Resolved]
  - Palmar-plantar erythrodysaesthesia syndrome [Recovered/Resolved]
  - Cough [Unknown]
  - Constipation [Unknown]
  - Oral pain [Recovered/Resolved]
  - Haemoptysis [Unknown]

NARRATIVE: CASE EVENT DATE: 2015
